FAERS Safety Report 9770611 (Version 1)
Quarter: 2013Q4

REPORT INFORMATION
  Report Type: Spontaneous
  Country: US (occurrence: US)
  Receive Date: 20131218
  Receipt Date: 20131218
  Transmission Date: 20140711
  Serious: No
  Sender: FDA-Public Use
  Company Number: US-PFIZER INC-2013362991

PATIENT
  Sex: Female

DRUGS (2)
  1. LYRICA [Suspect]
     Indication: BACK PAIN
     Dosage: UNK, 2X/DAY (TWO IN THE MORNING AND TWO IN NIGHT)
     Dates: start: 2013, end: 2013
  2. LYRICA [Suspect]
     Indication: NEURALGIA
     Dosage: UNK, 2X/DAY (ONE IN THE MORNING AND ONE IN NIGHT)
     Dates: start: 2013

REACTIONS (1)
  - Off label use [Unknown]
